FAERS Safety Report 11607328 (Version 1)
Quarter: 2015Q3

REPORT INFORMATION
  Report Type: Spontaneous
  Country: US (occurrence: US)
  Receive Date: 20150916
  Receipt Date: 20150916
  Transmission Date: 20151125
  Serious: No
  Sender: FDA-Public Use
  Company Number: US-ELI_LILLY_AND_COMPANY-US201401005056

PATIENT
  Sex: Female

DRUGS (18)
  1. HUMALOG MIX75/25 [Suspect]
     Active Substance: INSULIN LISPRO
     Dosage: 30 U, BID
     Route: 065
     Dates: start: 2011
  2. GLIPIZIDE. [Concomitant]
     Active Substance: GLIPIZIDE
  3. VITAMIN C [Concomitant]
     Active Substance: ASCORBIC ACID
  4. HUMALOG MIX75/25 [Suspect]
     Active Substance: INSULIN LISPRO
     Indication: DIABETES MELLITUS
     Dosage: 30 U, BID
     Route: 065
     Dates: start: 2011
  5. HUMALOG [Suspect]
     Active Substance: INSULIN LISPRO
     Route: 065
  6. VALSARTAN W/HIDROCLOROTIAZIDA [Concomitant]
  7. OMEPRAZOLE. [Concomitant]
     Active Substance: OMEPRAZOLE
  8. METFORMIN HYDROCHLORIDE. [Concomitant]
     Active Substance: METFORMIN HYDROCHLORIDE
  9. GABAPENTIN. [Concomitant]
     Active Substance: GABAPENTIN
  10. FUROSEMIDE. [Concomitant]
     Active Substance: FUROSEMIDE
  11. DILTIAZEM [Concomitant]
     Active Substance: DILTIAZEM
  12. CELEXA [Concomitant]
     Active Substance: CITALOPRAM HYDROBROMIDE
  13. HUMALOG [Suspect]
     Active Substance: INSULIN LISPRO
     Indication: DIABETES MELLITUS
     Dosage: UNK
     Route: 065
  14. IRON [Concomitant]
     Active Substance: IRON
  15. ASPIRIN                                 /USA/ [Concomitant]
  16. CRESTOR [Concomitant]
     Active Substance: ROSUVASTATIN CALCIUM
  17. CETIRIZINE [Concomitant]
     Active Substance: CETIRIZINE HYDROCHLORIDE
  18. FISH OIL [Concomitant]
     Active Substance: FISH OIL

REACTIONS (5)
  - Diabetes mellitus inadequate control [Unknown]
  - Stress [Unknown]
  - Wrong drug administered [Unknown]
  - Heart rate increased [Unknown]
  - Fear of injection [Unknown]
